FAERS Safety Report 12419013 (Version 1)
Quarter: 2016Q2

REPORT INFORMATION
  Report Type: Spontaneous
  Country: US (occurrence: None)
  Receive Date: 20160527
  Receipt Date: 20160527
  Transmission Date: 20160815
  Serious: No
  Sender: FDA-Public Use
  Company Number: None

PATIENT
  Age: 55 Year
  Weight: 64.86 kg

DRUGS (2)
  1. OXYCODONE-ACETAMETAMIN [Suspect]
     Active Substance: ACETAMINOPHEN\OXYCODONE HYDROCHLORIDE
     Indication: POSTOPERATIVE ANALGESIA
     Dosage: 30 TABLET(S) EVERY 6 HOURS TAKEN BY MOUTH
     Route: 048
     Dates: start: 20160523
  2. SUPER KRILL KRILL OIL P-5-P [Concomitant]

REACTIONS (1)
  - Product commingling [None]

NARRATIVE: CASE EVENT DATE: 20160524
